FAERS Safety Report 8419736-0 (Version None)
Quarter: 2012Q2

REPORT INFORMATION
  Report Type: 
  Country: None (occurrence: None)
  Receive Date: 20120607
  Receipt Date: 20120601
  Transmission Date: 20120825
  Serious: Yes (Hospitalization)
  Sender: FDA-Public Use
  Company Number: US-ACTELION-A-US2012-63209

PATIENT

DRUGS (4)
  1. VENTAVIS [Suspect]
     Indication: PULMONARY ARTERIAL HYPERTENSION
     Dosage: UNK
     Route: 055
     Dates: start: 20070817
  2. VIAGRA [Concomitant]
  3. TYVASO [Concomitant]
  4. TRACLEER [Suspect]
     Indication: PULMONARY ARTERIAL HYPERTENSION
     Dosage: UNK
     Route: 048
     Dates: start: 20060818

REACTIONS (6)
  - COUGH [None]
  - DYSPNOEA [None]
  - PYREXIA [None]
  - RESPIRATORY SYNCYTIAL VIRUS INFECTION [None]
  - RESPIRATORY DISTRESS [None]
  - RHINOVIRUS INFECTION [None]
